FAERS Safety Report 9434770 (Version 1)
Quarter: 2013Q3

REPORT INFORMATION
  Report Type: Spontaneous
  Country: US (occurrence: US)
  Receive Date: 20130801
  Receipt Date: 20130801
  Transmission Date: 20140515
  Serious: Yes (Disabling, Other)
  Sender: FDA-Public Use
  Company Number: US-PFIZER INC-2013222043

PATIENT
  Age: 54 Year
  Sex: Female
  Weight: 72.56 kg

DRUGS (3)
  1. CADUET [Suspect]
     Indication: BLOOD CHOLESTEROL INCREASED
     Dosage: [AMLODIPINE BESILATE 10 MG]/[ATORVASTATIN CALCIUM 20 MG], ONCE A DAY
     Route: 048
  2. CADUET [Suspect]
     Indication: ARTERIAL OCCLUSIVE DISEASE
  3. ASPIRIN [Concomitant]
     Dosage: 81 MG, ONCE A DAY

REACTIONS (4)
  - Limb injury [Not Recovered/Not Resolved]
  - Rotator cuff syndrome [Unknown]
  - Rotator cuff syndrome [Not Recovered/Not Resolved]
  - Depression [Unknown]
